FAERS Safety Report 7903650-0 (Version None)
Quarter: 2011Q4

REPORT INFORMATION
  Report Type: 
  Country: None (occurrence: None)
  Receive Date: 20111109
  Receipt Date: 20111101
  Transmission Date: 20120403
  Serious: Yes (Other)
  Sender: FDA-Public Use
  Company Number: US-JNJFOC-20110809252

PATIENT
  Sex: Female
  Weight: 65.77 kg

DRUGS (2)
  1. LISTERINE TOTAL CARE PLUS WHITENING [Suspect]
     Indication: DENTAL CARE
     Dosage: 1 TSP
     Route: 048
     Dates: end: 20110808
  2. SIMVASTATIN [Concomitant]
     Indication: BLOOD CHOLESTEROL INCREASED
     Route: 065

REACTIONS (4)
  - APPLICATION SITE BURN [None]
  - TONGUE DISCOLOURATION [None]
  - FUNGAL INFECTION [None]
  - DYSPHAGIA [None]
